FAERS Safety Report 5135301-5 (Version None)
Quarter: 2006Q4

REPORT INFORMATION
  Report Type: 
  Country: None (occurrence: None)
  Receive Date: 20061026
  Receipt Date: 20060202
  Transmission Date: 20070319
  Serious: Yes (Hospitalization)
  Sender: FDA-Public Use
  Company Number: CH-AVENTIS-200611042GDDC

PATIENT
  Age: 71 Year
  Sex: Female

DRUGS (8)
  1. AMARYL [Suspect]
     Indication: DIABETES MELLITUS NON-INSULIN-DEPENDENT
     Route: 048
     Dates: start: 20050909, end: 20051019
  2. AMARYL [Suspect]
     Route: 048
     Dates: end: 20050603
  3. METFORMIN HCL [Suspect]
     Indication: DIABETES MELLITUS NON-INSULIN-DEPENDENT
     Route: 048
     Dates: start: 20050909, end: 20051019
  4. PLAVIX [Suspect]
     Indication: MYOCARDIAL ISCHAEMIA
     Route: 048
     Dates: start: 20050909, end: 20051019
  5. ASPIRIN [Concomitant]
     Route: 048
     Dates: start: 20050909
  6. BELOC-ZOK [Concomitant]
     Route: 048
     Dates: start: 20050909
  7. SELIPRAN [Concomitant]
     Route: 048
     Dates: start: 20050909
  8. CO-ENATEC [Concomitant]
     Route: 048
     Dates: start: 20050909

REACTIONS (5)
  - AGRANULOCYTOSIS [None]
  - CELLULITIS [None]
  - ESCHERICHIA URINARY TRACT INFECTION [None]
  - GINGIVITIS [None]
  - STOMATITIS [None]
